FAERS Safety Report 6720428-4 (Version None)
Quarter: 2010Q2

REPORT INFORMATION
  Report Type: 
  Country: None (occurrence: None)
  Receive Date: 20100511
  Receipt Date: 20080219
  Transmission Date: 20101027
  Serious: Yes (Disabling, Other)
  Sender: FDA-Public Use
  Company Number: US-BRISTOL-MYERS SQUIBB COMPANY-13644372

PATIENT
  Age: 55 Year
  Sex: Female
  Weight: 86 kg

DRUGS (17)
  1. ABILIFY [Suspect]
     Indication: PSYCHOTIC DISORDER
     Dosage: DOSAGE INCREASED Q12WKS FROM 5MG,TO 7.5MG TO 10MG TO 15MG. DOSAGE OF 22.5MG WAS REPORTED.
     Dates: start: 20030901, end: 20061016
  2. ABILIFY [Suspect]
     Indication: HALLUCINATION
     Dosage: DOSAGE INCREASED Q12WKS FROM 5MG,TO 7.5MG TO 10MG TO 15MG. DOSAGE OF 22.5MG WAS REPORTED.
     Dates: start: 20030901, end: 20061016
  3. ABILIFY [Suspect]
     Indication: MOOD SWINGS
     Dosage: DOSAGE INCREASED Q12WKS FROM 5MG,TO 7.5MG TO 10MG TO 15MG. DOSAGE OF 22.5MG WAS REPORTED.
     Dates: start: 20030901, end: 20061016
  4. BUPROPION HCL [Concomitant]
  5. BUSPIRONE HCL [Concomitant]
  6. ESOMEPRAZOLE [Concomitant]
  7. SULINDAC [Concomitant]
  8. GABAPENTIN [Concomitant]
     Indication: ANXIETY
  9. LOPERAMIDE HCL [Concomitant]
  10. DIAZEPAM [Concomitant]
     Indication: TEMPOROMANDIBULAR JOINT SYNDROME
  11. DIAZEPAM [Concomitant]
     Indication: ANXIETY
  12. AMLODIPINE BESYLATE [Concomitant]
  13. LIOTHYRONINE SODIUM [Concomitant]
  14. ASPIRIN [Concomitant]
  15. MULTI-VITAMIN [Concomitant]
  16. CALCIUM [Concomitant]
  17. PERIDEX [Concomitant]

REACTIONS (6)
  - DENTAL ALVEOLAR ANOMALY [None]
  - DRY MOUTH [None]
  - MOUTH ULCERATION [None]
  - SUICIDAL IDEATION [None]
  - TARDIVE DYSKINESIA [None]
  - THROAT IRRITATION [None]
